FAERS Safety Report 21089802 (Version 2)
Quarter: 2022Q3

REPORT INFORMATION
  Report Type: Spontaneous
  Country: None (occurrence: US)
  Receive Date: 20220715
  Receipt Date: 20220921
  Transmission Date: 20221027
  Serious: No
  Sender: FDA-Public Use
  Company Number: US-Graviti Pharmaceuticals Private Limited-2130924

PATIENT
  Age: 48 Year
  Sex: Male
  Weight: 130 kg

DRUGS (1)
  1. ESOMEPRAZOLE MAGNESIUM [Suspect]
     Active Substance: ESOMEPRAZOLE MAGNESIUM
     Indication: Gastrooesophageal reflux disease
     Route: 065
     Dates: start: 2017, end: 20220515

REACTIONS (3)
  - Product quality issue [Unknown]
  - Drug ineffective [Unknown]
  - Product substitution issue [Unknown]
